FAERS Safety Report 25123963 (Version 2)
Quarter: 2025Q2

REPORT INFORMATION
  Report Type: Spontaneous
  Country: AT (occurrence: AT)
  Receive Date: 20250326
  Receipt Date: 20250407
  Transmission Date: 20250716
  Serious: Yes (Hospitalization)
  Sender: TEVA
  Company Number: AT-TEVA-VS-3312238

PATIENT
  Age: 47 Year
  Sex: Male

DRUGS (4)
  1. LAMOTRIGINE [Suspect]
     Active Substance: LAMOTRIGINE
     Indication: Temporal lobe epilepsy
     Route: 065
     Dates: start: 202206, end: 202210
  2. LAMOTRIGINE [Suspect]
     Active Substance: LAMOTRIGINE
     Indication: Temporal lobe epilepsy
     Route: 065
     Dates: start: 202210
  3. BRIVARACETAM [Concomitant]
     Active Substance: BRIVARACETAM
     Indication: Temporal lobe epilepsy
     Route: 065
     Dates: start: 202210
  4. LEVETIRACETAM [Concomitant]
     Active Substance: LEVETIRACETAM
     Indication: Temporal lobe epilepsy
     Route: 065
     Dates: start: 202206, end: 202210

REACTIONS (1)
  - Parkinsonism [Unknown]
